FAERS Safety Report 18298208 (Version 10)
Quarter: 2022Q3

REPORT INFORMATION
  Report Type: Spontaneous
  Country: CA (occurrence: CA)
  Receive Date: 20200923
  Receipt Date: 20220818
  Transmission Date: 20221027
  Serious: Yes (Other)
  Sender: FDA-Public Use
  Company Number: CA-CELLTRION INC.-2019CA023399

PATIENT

DRUGS (33)
  1. INFLECTRA [Suspect]
     Active Substance: INFLIXIMAB-DYYB
     Indication: Crohn^s disease
     Dosage: 300 MG OR (5 MG/KG), Q 0, 2, 6 WEEKS, THEN EVERY 8 WEEKS
     Route: 042
     Dates: start: 20190708, end: 20200204
  2. INFLECTRA [Suspect]
     Active Substance: INFLIXIMAB-DYYB
     Dosage: 300 MG OR (5 MG/KG), Q 0, 2, 6 WEEKS, THEN EVERY 8 WEEKS
     Route: 042
     Dates: start: 20190723
  3. INFLECTRA [Suspect]
     Active Substance: INFLIXIMAB-DYYB
     Dosage: 300 MG OR (5 MG/KG), Q 0, 2, 6 WEEKS, THEN EVERY 8 WEEKS
     Route: 042
     Dates: start: 20191015
  4. INFLECTRA [Suspect]
     Active Substance: INFLIXIMAB-DYYB
     Dosage: 300 MG OR (5 MG/KG), Q 0, 2, 6 WEEKS, THEN EVERY 8 WEEKS
     Route: 042
     Dates: start: 20191210
  5. INFLECTRA [Suspect]
     Active Substance: INFLIXIMAB-DYYB
     Dosage: 300 MG OR (5 MG/KG), Q 0, 2, 6 WEEKS, THEN EVERY 8 WEEKS
     Route: 042
     Dates: start: 20200204
  6. INFLECTRA [Suspect]
     Active Substance: INFLIXIMAB-DYYB
     Dosage: 300 MG OR (5 MG/KG), Q 0, 2, 6 WEEKS, THEN EVERY 8 WEEKS
     Route: 042
     Dates: start: 20200204
  7. INFLECTRA [Suspect]
     Active Substance: INFLIXIMAB-DYYB
     Dosage: 500 MG EVERY 8 WEEKS
     Route: 042
     Dates: start: 20200331, end: 20200331
  8. INFLECTRA [Suspect]
     Active Substance: INFLIXIMAB-DYYB
     Dosage: 500 MG EVERY 8 WEEKS
     Route: 042
     Dates: start: 20200331, end: 20200715
  9. INFLECTRA [Suspect]
     Active Substance: INFLIXIMAB-DYYB
     Dosage: 500 MG EVERY 8 WEEKS
     Route: 042
     Dates: start: 20200526, end: 20200526
  10. INFLECTRA [Suspect]
     Active Substance: INFLIXIMAB-DYYB
     Dosage: 500 MG EVERY 8 WEEKS
     Route: 042
     Dates: start: 20200715
  11. INFLECTRA [Suspect]
     Active Substance: INFLIXIMAB-DYYB
     Dosage: 500 MG (10MG/KG) EVERY 6 WEEKS
     Route: 042
     Dates: start: 20200826, end: 20200826
  12. INFLECTRA [Suspect]
     Active Substance: INFLIXIMAB-DYYB
     Dosage: 500 MG (10MG/KG) EVERY 6 WEEKS
     Route: 042
     Dates: start: 20210616
  13. INFLECTRA [Suspect]
     Active Substance: INFLIXIMAB-DYYB
     Dosage: 500 MG (10MG/KG) EVERY 6 WEEKS
     Route: 042
     Dates: start: 20210728, end: 20210728
  14. INFLECTRA [Suspect]
     Active Substance: INFLIXIMAB-DYYB
     Dosage: 500 MG (10MG/KG) EVERY 6 WEEKS
     Route: 042
     Dates: start: 20210902
  15. INFLECTRA [Suspect]
     Active Substance: INFLIXIMAB-DYYB
     Dosage: 500 MG (10MG/KG) EVERY 6 WEEKS
     Route: 042
     Dates: start: 20211013
  16. INFLECTRA [Suspect]
     Active Substance: INFLIXIMAB-DYYB
     Dosage: 500 MG (10MG/KG) EVERY 6 WEEKS
     Route: 042
     Dates: start: 20211124
  17. INFLECTRA [Suspect]
     Active Substance: INFLIXIMAB-DYYB
     Dosage: 500 MG (10MG/KG) EVERY 6 WEEKS
     Route: 042
     Dates: start: 20220105
  18. INFLECTRA [Suspect]
     Active Substance: INFLIXIMAB-DYYB
     Dosage: 500 MG (10MG/KG) EVERY 6 WEEKS
     Route: 042
     Dates: start: 20220216
  19. INFLECTRA [Suspect]
     Active Substance: INFLIXIMAB-DYYB
     Dosage: 500 MG EVERY 6 WEEKS
     Route: 042
     Dates: start: 20220330
  20. INFLECTRA [Suspect]
     Active Substance: INFLIXIMAB-DYYB
     Dosage: 500 MG EVERY 6 WEEKS
     Route: 042
     Dates: start: 20220511
  21. INFLECTRA [Suspect]
     Active Substance: INFLIXIMAB-DYYB
     Dosage: 500 MG EVERY 6 WEEKS
     Route: 042
     Dates: start: 20220620
  22. INFLECTRA [Suspect]
     Active Substance: INFLIXIMAB-DYYB
     Dosage: 500 MG EVERY 6 WEEKS
     Route: 042
     Dates: start: 20220805
  23. PRASTERONE [Concomitant]
     Active Substance: PRASTERONE
     Dosage: UNK
     Route: 065
  24. PRASTERONE [Concomitant]
     Active Substance: PRASTERONE
     Dosage: 1 DF
     Route: 065
  25. PRASTERONE [Concomitant]
     Active Substance: PRASTERONE
     Dosage: 1 DF
     Route: 065
  26. PRASTERONE [Concomitant]
     Active Substance: PRASTERONE
     Dosage: 1 DF DOSAGE INFO NOT PROVIDED
     Route: 065
  27. PREGNENOLONE [Concomitant]
     Active Substance: PREGNENOLONE
     Dosage: 1 DF
     Route: 065
  28. PREGNENOLONE [Concomitant]
     Active Substance: PREGNENOLONE
     Dosage: 1 DF DOSAGE INFO NOT PROVIDED
     Route: 065
  29. PROGESTERONE [Concomitant]
     Active Substance: PROGESTERONE
     Dosage: 1 DF DOSAGE INFO NOT PROVIDED
     Route: 065
  30. SULFASALAZINE [Concomitant]
     Active Substance: SULFASALAZINE
     Dosage: 3000 MG, 1X/DAY
     Route: 048
     Dates: start: 201808
  31. SULFASALAZINE [Concomitant]
     Active Substance: SULFASALAZINE
     Dosage: 300 MG, 1X/DAY
     Route: 065
     Dates: start: 201808
  32. CYANOCOBALAMIN\FOLIC ACID [Concomitant]
     Active Substance: CYANOCOBALAMIN\FOLIC ACID
     Dosage: 1 DF
  33. VITAMIN B12 [Concomitant]
     Active Substance: CYANOCOBALAMIN
     Dosage: 1 DF DOSAGE INFO NOT PROVIDED
     Route: 065

REACTIONS (9)
  - Intestinal obstruction [Recovered/Resolved]
  - Endodontic procedure [Unknown]
  - Off label use [Unknown]
  - Off label use [Unknown]
  - Intentional product use issue [Unknown]
  - Weight decreased [Unknown]
  - Lymphocyte count increased [Unknown]
  - Red blood cell count decreased [Unknown]
  - Condition aggravated [Recovered/Resolved]

NARRATIVE: CASE EVENT DATE: 20190715
